FAERS Safety Report 5024263-7 (Version None)
Quarter: 2006Q2

REPORT INFORMATION
  Report Type: 
  Country: None (occurrence: None)
  Receive Date: 20060607
  Receipt Date: 20060530
  Transmission Date: 20061013
  Serious: Yes (Other)
  Sender: FDA-Public Use
  Company Number: 2006065165

PATIENT
  Age: 57 Year
  Sex: Female
  Weight: 92 kg

DRUGS (9)
  1. NEURONTIN [Suspect]
     Indication: NEURALGIA
     Dosage: (300 MG), ORAL
     Route: 048
     Dates: start: 19980101
  2. OPIOIDS (OPIOIDS) [Concomitant]
  3. ALL OTHER THERAPEUTIC PRODUCTS (ALL OTHER THERAPEUTIC PRODUCTS) [Concomitant]
  4. CHEMOTHERAPY NOS (CHEMOTHERAPY NOS) [Concomitant]
  5. THERAPEUTIC RADIOPHARMACEUTICALS (THERAPEUTIC RADIOPHARMACEUTICALS) [Concomitant]
  6. ANASTROZOLE [Concomitant]
  7. NEFOPAM (NEFOPAM) [Concomitant]
  8. PROPIVERINE (PROPIVERINE) [Concomitant]
  9. HYDROMORPHONE HCL [Concomitant]

REACTIONS (1)
  - LOOSE TOOTH [None]
